FAERS Safety Report 16298192 (Version 1)
Quarter: 2019Q2

REPORT INFORMATION
  Report Type: Report from Study
  Country: US (occurrence: US)
  Receive Date: 20190510
  Receipt Date: 20190510
  Transmission Date: 20190711
  Serious: Yes (Hospitalization, Other)
  Sender: FDA-Public Use
  Company Number: US-TAKEDA-2019TUS028022

PATIENT
  Age: 48 Year
  Sex: Male
  Weight: 98.4 kg

DRUGS (9)
  1. MS CONTIN [Concomitant]
     Active Substance: MORPHINE SULFATE
     Indication: PAIN
     Dosage: 30 MILLIGRAM, Q12H
     Route: 048
     Dates: start: 20190319
  2. NORVASC [Concomitant]
     Active Substance: AMLODIPINE BESYLATE
     Indication: HYPERTENSION
     Dosage: 5 MILLIGRAM, QD
     Route: 048
     Dates: start: 20181201
  3. IXAZOMIB [Suspect]
     Active Substance: IXAZOMIB
     Indication: NON-RENAL CELL CARCINOMA OF KIDNEY
     Dosage: 5.5 MILLIGRAM, Q2WEEKS
     Route: 048
     Dates: start: 20190319
  4. GEMCITABINE [Suspect]
     Active Substance: GEMCITABINE\GEMCITABINE HYDROCHLORIDE
     Indication: NON-RENAL CELL CARCINOMA OF KIDNEY
     Dosage: 559 MILLIGRAM/SQ. METER, Q2WEEKS
     Route: 042
     Dates: start: 20190403
  5. ZOFRAN [Concomitant]
     Active Substance: ONDANSETRON HYDROCHLORIDE
     Indication: VOMITING
  6. PERCOCET [Concomitant]
     Active Substance: ACETAMINOPHEN\OXYCODONE HYDROCHLORIDE
     Indication: PAIN
     Dosage: UNK UNK, Q6HR
     Route: 048
     Dates: start: 20190115
  7. DOXORUBICIN [Suspect]
     Active Substance: DOXORUBICIN
     Indication: NON-RENAL CELL CARCINOMA OF KIDNEY
     Dosage: 33 MILLIGRAM/SQ. METER, Q2WEEKS
     Route: 042
     Dates: start: 20190403
  8. ZOFRAN [Concomitant]
     Active Substance: ONDANSETRON HYDROCHLORIDE
     Indication: NAUSEA
     Dosage: 8 MILLIGRAM, Q8HR
     Dates: start: 20190314
  9. MS IR [Concomitant]
     Active Substance: MORPHINE SULFATE
     Indication: PAIN
     Dosage: 15 MILLIGRAM, Q4HR
     Route: 048
     Dates: start: 20190319

REACTIONS (2)
  - Deep vein thrombosis [Unknown]
  - Pneumonia [Unknown]

NARRATIVE: CASE EVENT DATE: 20190427
